FAERS Safety Report 8028565-1 (Version None)
Quarter: 2012Q1

REPORT INFORMATION
  Report Type: 
  Country: None (occurrence: None)
  Receive Date: 20120106
  Receipt Date: 20110725
  Transmission Date: 20120608
  Serious: No
  Sender: FDA-Public Use
  Company Number: US-MYLANLABS-2011S1015521

PATIENT
  Sex: Female

DRUGS (4)
  1. AZATHIOPRINE [Suspect]
     Indication: CROHN'S DISEASE
     Route: 048
     Dates: start: 20110125
  2. AZATHIOPRINE [Suspect]
     Route: 048
     Dates: end: 20110401
  3. AMBIEN [Concomitant]
     Indication: INSOMNIA
  4. AZATHIOPRINE [Suspect]
     Route: 048
     Dates: start: 20110401

REACTIONS (3)
  - DIARRHOEA [None]
  - FAECES DISCOLOURED [None]
  - CHROMATURIA [None]
